FAERS Safety Report 19465594 (Version 31)
Quarter: 2025Q3

REPORT INFORMATION
  Report Type: Spontaneous
  Country: CA (occurrence: CA)
  Receive Date: 20210625
  Receipt Date: 20250703
  Transmission Date: 20251021
  Serious: Yes (Hospitalization)
  Sender: MERCK SHARP & DOHME LLC
  Company Number: None

PATIENT
  Age: 71 Year
  Sex: Female

DRUGS (22)
  1. KEYTRUDA [Suspect]
     Active Substance: PEMBROLIZUMAB
     Indication: Product used for unknown indication
     Route: 065
  2. LENVATINIB MESYLATE [Suspect]
     Active Substance: LENVATINIB MESYLATE
     Indication: Endometrial cancer
     Dosage: DOSE DESCRIPTION : 20 MILLIGRAM, QD?DAILY DOSE : 20 MILLIGRAM?REGIMEN DOSE : 180  MILLIGRAM
     Route: 048
  3. LENVATINIB MESYLATE [Suspect]
     Active Substance: LENVATINIB MESYLATE
     Indication: Endometrial cancer
     Route: 048
  4. LENVATINIB MESYLATE [Suspect]
     Active Substance: LENVATINIB MESYLATE
     Indication: Endometrial cancer
     Route: 048
  5. AMLODIPINE BESYLATE [Suspect]
     Active Substance: AMLODIPINE BESYLATE
     Indication: Product used for unknown indication
     Route: 065
  6. AMLODIPINE BESYLATE [Suspect]
     Active Substance: AMLODIPINE BESYLATE
     Indication: Product used for unknown indication
     Route: 065
  7. AMLODIPINE BESYLATE [Suspect]
     Active Substance: AMLODIPINE BESYLATE
     Indication: Product used for unknown indication
     Route: 065
  8. CALCIUM CARBONATE [Suspect]
     Active Substance: CALCIUM CARBONATE
     Indication: Product used for unknown indication
     Route: 065
  9. CALCIUM CARBONATE [Suspect]
     Active Substance: CALCIUM CARBONATE
     Indication: Product used for unknown indication
     Route: 065
  10. CALCIUM LACTATE GLUCONATE [Suspect]
     Active Substance: CALCIUM LACTATE GLUCONATE
     Indication: Product used for unknown indication
     Route: 065
  11. CALCIUM\CHOLECALCIFEROL\MAGNESIUM [Suspect]
     Active Substance: CALCIUM\CHOLECALCIFEROL\MAGNESIUM
     Indication: Product used for unknown indication
     Route: 065
  12. CALCIUM\CHOLECALCIFEROL\MAGNESIUM [Suspect]
     Active Substance: CALCIUM\CHOLECALCIFEROL\MAGNESIUM
     Indication: Product used for unknown indication
     Route: 065
  13. CHOLECALCIFEROL [Suspect]
     Active Substance: CHOLECALCIFEROL
     Indication: Product used for unknown indication
     Route: 065
  14. CYANOCOBALAMIN [Suspect]
     Active Substance: CYANOCOBALAMIN
     Indication: Product used for unknown indication
     Route: 065
  15. CYANOCOBALAMIN [Suspect]
     Active Substance: CYANOCOBALAMIN
     Indication: Product used for unknown indication
     Route: 065
  16. DILAUDID [Suspect]
     Active Substance: HYDROMORPHONE HYDROCHLORIDE
     Indication: Product used for unknown indication
     Route: 065
  17. ELIQUIS [Suspect]
     Active Substance: APIXABAN
     Indication: Product used for unknown indication
     Dosage: DOSE DESCRIPTION : 2 EVERY 1 DAYS?DAILY DOSE : 2 DOSAGE FORM
     Route: 048
  18. ELIQUIS [Suspect]
     Active Substance: APIXABAN
     Indication: Product used for unknown indication
     Route: 048
  19. ERGOCALCIFEROL [Suspect]
     Active Substance: ERGOCALCIFEROL
     Indication: Product used for unknown indication
     Route: 065
  20. ERGOCALCIFEROL [Suspect]
     Active Substance: ERGOCALCIFEROL
     Indication: Product used for unknown indication
     Route: 065
  21. ERGOCALCIFEROL [Suspect]
     Active Substance: ERGOCALCIFEROL
     Indication: Product used for unknown indication
     Route: 065
  22. ROSUVASTATIN CALCIUM [Suspect]
     Active Substance: ROSUVASTATIN CALCIUM
     Indication: Product used for unknown indication
     Route: 048

REACTIONS (6)
  - Abdominal pain [Unknown]
  - Blood pressure increased [Unknown]
  - Fatigue [Unknown]
  - Malignant neoplasm progression [Unknown]
  - Pyrexia [Unknown]
  - Renal impairment [Unknown]
